FAERS Safety Report 8409485-7 (Version None)
Quarter: 2012Q2

REPORT INFORMATION
  Report Type: 
  Country: None (occurrence: None)
  Receive Date: 20120531
  Receipt Date: 20120531
  Transmission Date: 20120825
  Serious: Yes (Life-Threatening, Hospitalization)
  Sender: FDA-Public Use
  Company Number: None

PATIENT
  Sex: Female
  Weight: 123.3784 kg

DRUGS (4)
  1. NORGESTIMATE AND ETHINYL ESTRADIOL [Suspect]
     Indication: POLYCYSTIC OVARIES
     Dosage: 0.25/0.035MG 1 TAB DAILY MOUTH
     Route: 048
     Dates: start: 20120106, end: 20120319
  2. NORGESTIMATE AND ETHINYL ESTRADIOL [Suspect]
     Indication: CONTRACEPTION
     Dosage: 0.25/0.035MG 1 TAB DAILY MOUTH
     Route: 048
     Dates: start: 20120106, end: 20120319
  3. ORTHO CYCLEN-28 [Suspect]
  4. TRI-SPRINTEC [Suspect]

REACTIONS (8)
  - CHEST DISCOMFORT [None]
  - DEEP VEIN THROMBOSIS [None]
  - DYSPNOEA [None]
  - HEMIPARESIS [None]
  - PAIN IN EXTREMITY [None]
  - OEDEMA PERIPHERAL [None]
  - HYPOAESTHESIA [None]
  - JOINT SWELLING [None]
